FAERS Safety Report 4932437-6 (Version None)
Quarter: 2006Q1

REPORT INFORMATION
  Report Type: 
  Country: None (occurrence: None)
  Receive Date: 20060224
  Receipt Date: 20060221
  Transmission Date: 20060701
  Serious: Yes (Hospitalization)
  Sender: FDA-Public Use
  Company Number: DEWYE414421FEB06

PATIENT
  Age: 37 Year
  Sex: Male

DRUGS (3)
  1. VENLAFAXINE HCL [Suspect]
     Dosage: 50 CAPSULES (OVERDOSE AMOUNT 7500 MG); ORAL
     Route: 048
     Dates: start: 20060220, end: 20060220
  2. DOMINAL FORTE (PROTHIPENDYL HYDROCHLORIDE, , 0) [Suspect]
     Dosage: 50 TABLETS (OVERDOSE AMOUNT 2000 MG); ORAL
     Route: 048
     Dates: start: 20060220, end: 20060220
  3. MIRTAZAPINE [Suspect]
     Dosage: 46 TABLETS (OVERDOSE AMOUNT 690 MG); ORAL
     Route: 048
     Dates: start: 20060220, end: 20060220

REACTIONS (5)
  - APNOEA [None]
  - COMA [None]
  - INTENTIONAL OVERDOSE [None]
  - SUICIDE ATTEMPT [None]
  - VOMITING [None]
